FAERS Safety Report 18245868 (Version 3)
Quarter: 2020Q3

REPORT INFORMATION
  Report Type: Report from Study
  Country: BR (occurrence: BR)
  Receive Date: 20200909
  Receipt Date: 20200923
  Transmission Date: 20201103
  Serious: Yes (Other)
  Sender: FDA-Public Use
  Company Number: BR-AMGEN-BRACT2020130967

PATIENT
  Age: 74 Year
  Sex: Female

DRUGS (2)
  1. NARAMIG [Concomitant]
     Active Substance: NARATRIPTAN HYDROCHLORIDE
     Indication: PRODUCT USED FOR UNKNOWN INDICATION
     Dosage: SEVERAL TIMES A DAY
     Route: 065
  2. PASURTA [Suspect]
     Active Substance: ERENUMAB
     Indication: MIGRAINE
     Dosage: UNK, QMO
     Route: 065
     Dates: start: 20200729

REACTIONS (4)
  - Chills [Recovering/Resolving]
  - Retching [Recovering/Resolving]
  - Pain [Not Recovered/Not Resolved]
  - Headache [Recovering/Resolving]

NARRATIVE: CASE EVENT DATE: 20200729
